FAERS Safety Report 8052821-4 (Version None)
Quarter: 2012Q1

REPORT INFORMATION
  Report Type: 
  Country: None (occurrence: None)
  Receive Date: 20120118
  Receipt Date: 20120113
  Transmission Date: 20120608
  Serious: Yes (Death, Other)
  Sender: FDA-Public Use
  Company Number: PHHY2012CZ003587

PATIENT
  Age: 59 Year
  Sex: Male

DRUGS (3)
  1. INTERFERON [Concomitant]
     Indication: CHRONIC MYELOID LEUKAEMIA
     Dosage: UNK
  2. IMATINIB MESYLATE [Suspect]
     Indication: CHRONIC MYELOID LEUKAEMIA
     Dosage: UNK UKN, UNK
  3. HYDROXYUREA [Suspect]
     Indication: CHRONIC MYELOID LEUKAEMIA
     Dosage: UNK

REACTIONS (3)
  - NEOPLASM MALIGNANT [None]
  - DEATH [None]
  - MALIGNANT MELANOMA [None]
